FAERS Safety Report 9128950 (Version 1)
Quarter: 2013Q1

REPORT INFORMATION
  Report Type: Spontaneous
  Country: US (occurrence: US)
  Receive Date: 20130228
  Receipt Date: 20130228
  Transmission Date: 20140127
  Serious: Yes (Hospitalization, Other)
  Sender: FDA-Public Use
  Company Number: US-ROCHE-1154864

PATIENT
  Sex: Female
  Weight: 45.4 kg

DRUGS (3)
  1. PEGASYS [Suspect]
     Indication: CHRONIC HEPATITIS C
     Route: 058
     Dates: start: 20121101
  2. RIBASPHERE [Suspect]
     Indication: CHRONIC HEPATITIS C
     Dosage: DIVIDED DOSE
     Route: 048
     Dates: start: 20121101
  3. RIBASPHERE [Suspect]
     Route: 048
     Dates: start: 201301

REACTIONS (10)
  - Bronchitis [Unknown]
  - Local swelling [Unknown]
  - Incorrect dose administered [Unknown]
  - Depression [Unknown]
  - Erythema [Unknown]
  - Pruritus [Unknown]
  - Anaemia [Unknown]
  - Hyperthyroidism [Unknown]
  - Heart rate increased [Unknown]
  - Pain in extremity [Unknown]
